FAERS Safety Report 15589346 (Version 2)
Quarter: 2018Q4

REPORT INFORMATION
  Report Type: Spontaneous
  Country: US (occurrence: US)
  Receive Date: 20181106
  Receipt Date: 20181114
  Transmission Date: 20190205
  Serious: Yes (Other)
  Sender: FDA-Public Use
  Company Number: US-TEVA-2018-US-972713

PATIENT
  Age: 25 Month
  Sex: Female

DRUGS (11)
  1. CISPLATIN. [Suspect]
     Active Substance: CISPLATIN
     Indication: CONGENITAL TERATOMA
     Dosage: 25 MG/M2, FROM DAYS 2 TO 5 (WITH PACLITAXEL AND IFOSFAMIDE)
     Route: 065
  2. ETOPOSIDE. [Suspect]
     Active Substance: ETOPOSIDE
     Indication: CONGENITAL TERATOMA
     Dosage: 100 MG/M2, FROM DAYS 1 TO 5. LATER, GIVEN WITH CARBOPLATIN AS CONSOLIDATION TREATMENT
     Route: 065
  3. ETOPOSIDE. [Suspect]
     Active Substance: ETOPOSIDE
     Indication: CONGENITAL TERATOMA
     Dosage: 400 MG/M2, FROM DAYS -4 TO -2 (WITH CARBOPLATIN AS CONSOLIDATION TREATMENT; RECEIVED 3 CYCLES)
     Route: 065
  4. CANNABIDIOL [Concomitant]
     Active Substance: CANNABIDIOL
     Indication: AICARDI^S SYNDROME
     Route: 065
  5. BLEOMYCIN [Suspect]
     Active Substance: BLEOMYCIN SULFATE
     Indication: CONGENITAL TERATOMA
     Dosage: 15 U/M2 ON DAY 1
     Route: 065
  6. IFOSFAMIDE. [Suspect]
     Active Substance: IFOSFAMIDE
     Indication: CONGENITAL TERATOMA
     Dosage: 1500 MG/M2, FROM DAYS 2 TO 5
     Route: 065
  7. PACLITAXEL. [Suspect]
     Active Substance: PACLITAXEL
     Indication: CONGENITAL TERATOMA
     Dosage: 250 MG/M2, ON DAY 1
     Route: 042
  8. CARBOPLATIN. [Suspect]
     Active Substance: CARBOPLATIN
     Indication: CONGENITAL TERATOMA
     Dosage: 600 MG/M2, FROM DAYS -4 TO -2 (RECEIVED 3 CYCLES OF CONSOLIDATION TREATMENT)
     Route: 065
  9. CLOBAZAM. [Concomitant]
     Active Substance: CLOBAZAM
     Indication: AICARDI^S SYNDROME
     Route: 065
  10. CISPLATIN. [Suspect]
     Active Substance: CISPLATIN
     Indication: CONGENITAL TERATOMA
     Dosage: 20 MG/M2, FROM DAYS 1 TO 5. LATER, GIVEN WITH PACLITAXEL AND IFOSFAMIDE
     Route: 042
  11. VIGABATRIN. [Concomitant]
     Active Substance: VIGABATRIN
     Indication: AICARDI^S SYNDROME
     Route: 065

REACTIONS (6)
  - Pyrexia [Unknown]
  - Anaemia [Unknown]
  - Mucosal inflammation [Unknown]
  - Deafness [Not Recovered/Not Resolved]
  - Neutropenia [Unknown]
  - Thrombocytopenia [Unknown]
